FAERS Safety Report 10373207 (Version 2)
Quarter: 2014Q3

REPORT INFORMATION
  Report Type: Spontaneous
  Country: US (occurrence: US)
  Receive Date: 20140808
  Receipt Date: 20140808
  Transmission Date: 20150326
  Serious: No
  Sender: FDA-Public Use
  Company Number: US-BRISTOL-MYERS SQUIBB COMPANY-20178174

PATIENT
  Age: 65 Year
  Sex: Female

DRUGS (3)
  1. TASIGNA [Concomitant]
     Active Substance: NILOTINIB
  2. SPRYCEL [Suspect]
     Active Substance: DASATINIB
     Indication: ACUTE LYMPHOCYTIC LEUKAEMIA
     Dosage: 1DF:1TAB
     Route: 048
  3. ICLUSIG [Concomitant]
     Active Substance: PONATINIB

REACTIONS (1)
  - Rash generalised [Unknown]
